FAERS Safety Report 9346319 (Version 3)
Quarter: 2013Q3

REPORT INFORMATION
  Report Type: Spontaneous
  Country: US (occurrence: US)
  Receive Date: 20130613
  Receipt Date: 20130709
  Transmission Date: 20140515
  Serious: No
  Sender: FDA-Public Use
  Company Number: US-009507513-1305USA017469

PATIENT
  Age: 68 Year
  Sex: Female
  Weight: 79.37 kg

DRUGS (5)
  1. CLARITIN LIQUIGELS [Suspect]
     Indication: HYPERSENSITIVITY
     Dosage: 10 MG, QAM
     Route: 048
     Dates: start: 20130320, end: 20130409
  2. CLARITIN LIQUIGELS [Suspect]
     Indication: MEDICAL OBSERVATION
  3. ZETIA [Concomitant]
     Indication: BLOOD CHOLESTEROL INCREASED
     Dosage: UNK, UNKNOWN
  4. OMEGA-3 MARINE TRIGLYCERIDES [Concomitant]
     Indication: BLOOD CHOLESTEROL INCREASED
     Dosage: UNK, UNKNOWN
  5. FLAXSEED [Concomitant]
     Indication: BLOOD CHOLESTEROL INCREASED
     Dosage: UNK, UNKNOWN

REACTIONS (1)
  - Drug ineffective [Unknown]
